FAERS Safety Report 6243971-3 (Version None)
Quarter: 2009Q2

REPORT INFORMATION
  Report Type: 
  Country: None (occurrence: None)
  Receive Date: 20090623
  Receipt Date: 20090616
  Transmission Date: 20091009
  Serious: Yes (Life-Threatening, Hospitalization, Other)
  Sender: FDA-Public Use
  Company Number: SPV1-2009-00951

PATIENT
  Sex: Male
  Weight: 54.9 kg

DRUGS (1)
  1. VYVANSE [Suspect]
     Indication: ATTENTION DEFICIT/HYPERACTIVITY DISORDER
     Dosage: 40 MG, 1X/DAY, QD, ORAL
     Route: 048
     Dates: start: 20090509, end: 20090509

REACTIONS (3)
  - ABASIA [None]
  - APHASIA [None]
  - CATATONIA [None]
